FAERS Safety Report 4346002-5 (Version None)
Quarter: 2004Q2

REPORT INFORMATION
  Report Type: 
  Country: None (occurrence: None)
  Receive Date: 20040420
  Receipt Date: 20040406
  Transmission Date: 20050107
  Serious: No
  Sender: FDA-Public Use
  Company Number: 27802

PATIENT
  Sex: Female

DRUGS (1)
  1. TRAVATAN SOLUTION TRAVOPROST 0.004% SOLUTION, UNSPECIFIED STEROID [Suspect]
     Dosage: OPHT
     Route: 047

REACTIONS (3)
  - COAGULATION FACTOR VIII LEVEL DECREASED [None]
  - CONDITION AGGRAVATED [None]
  - MOUTH HAEMORRHAGE [None]
